FAERS Safety Report 6436001-1 (Version None)
Quarter: 2009Q4

REPORT INFORMATION
  Report Type: 
  Country: None (occurrence: None)
  Receive Date: 20091111
  Receipt Date: 20091104
  Transmission Date: 20100525
  Serious: Yes (Hospitalization)
  Sender: FDA-Public Use
  Company Number: BE-ABBOTT-09P-013-0601107-00

PATIENT
  Sex: Female

DRUGS (2)
  1. TEVETEN [Suspect]
     Indication: HYPERTENSION
     Route: 048
     Dates: start: 20080616, end: 20081208
  2. DIURETIC [Concomitant]
     Indication: DRUG USE FOR UNKNOWN INDICATION

REACTIONS (3)
  - ANAEMIA [None]
  - GASTRITIS HAEMORRHAGIC [None]
  - GASTROINTESTINAL ANGIODYSPLASIA [None]
